FAERS Safety Report 4356016-7 (Version None)
Quarter: 2004Q2

REPORT INFORMATION
  Report Type: 
  Country: None (occurrence: None)
  Receive Date: 20040505
  Receipt Date: 20040423
  Transmission Date: 20050107
  Serious: Yes (Other)
  Sender: FDA-Public Use
  Company Number: A0508710A

PATIENT
  Age: 29 Year
  Sex: Female
  Weight: 70.3529 kg

DRUGS (2)
  1. NICODERM CQ [Suspect]
     Indication: EX-SMOKER
     Dosage: TRANSDERMAL
     Route: 062
     Dates: start: 20040322, end: 20040420
  2. NICORETTE [Suspect]
     Indication: EX-SMOKER
     Dosage: TRANSBUCCAL
     Dates: start: 20040406, end: 20040416

REACTIONS (7)
  - DIZZINESS [None]
  - FACIAL PALSY [None]
  - FALL [None]
  - HYPERHIDROSIS [None]
  - HYPOAESTHESIA [None]
  - NEURALGIA [None]
  - PARAESTHESIA [None]
